FAERS Safety Report 4443567-X (Version None)
Quarter: 2004Q3

REPORT INFORMATION
  Report Type: 
  Country: None (occurrence: None)
  Receive Date: 20040903
  Receipt Date: 20040903
  Transmission Date: 20050211
  Serious: Yes (Hospitalization)
  Sender: FDA-Public Use
  Company Number: None

PATIENT
  Sex: Male
  Weight: 71.6683 kg

DRUGS (14)
  1. IRESSA [Suspect]
     Indication: NON-SMALL CELL LUNG CANCER
     Dosage: 250 MG QD PO
     Route: 048
     Dates: start: 20040609, end: 20040729
  2. IRESSA [Suspect]
     Indication: NON-SMALL CELL LUNG CANCER
     Dosage: 250 MG QD PO
     Route: 048
     Dates: start: 20040828
  3. VIT C [Concomitant]
  4. VITAMIN B COMPLEX CAP [Concomitant]
  5. COQID [Concomitant]
  6. CENTRUM A-Z [Concomitant]
  7. LYSINE [Concomitant]
  8. PROLINE [Concomitant]
  9. GREENTEA [Concomitant]
  10. EXTRACT [Concomitant]
  11. LAXTRILE [Concomitant]
  12. MELATONIN [Concomitant]
  13. CARBOPLATIN [Suspect]
     Indication: NON-SMALL CELL LUNG CANCER
     Dosage: 220 MG
     Dates: start: 20040609, end: 20040728
  14. PACLITAXEL [Suspect]
     Indication: NON-SMALL CELL LUNG CANCER
     Dosage: 84MG IV
     Route: 042
     Dates: start: 20040609, end: 20040728

REACTIONS (2)
  - BLOOD CULTURE POSITIVE [None]
  - PNEUMONIA [None]
